FAERS Safety Report 12699006 (Version 1)
Quarter: 2016Q3

REPORT INFORMATION
  Report Type: Spontaneous
  Country: US (occurrence: US)
  Receive Date: 20160830
  Receipt Date: 20160830
  Transmission Date: 20161109
  Serious: No
  Sender: FDA-Public Use
  Company Number: US-GLAXOSMITHKLINE-US2016124890

PATIENT
  Age: 26 Year
  Sex: Female

DRUGS (1)
  1. EQUATE NICOTINE [Suspect]
     Active Substance: NICOTINE
     Indication: MOOD ALTERED
     Dosage: 21 MG, UNK
     Dates: start: 20160823

REACTIONS (6)
  - Vomiting [Recovered/Resolved]
  - Headache [Not Recovered/Not Resolved]
  - Intentional product misuse [Unknown]
  - Product quality issue [Unknown]
  - Malaise [Unknown]
  - Drug administration error [Unknown]

NARRATIVE: CASE EVENT DATE: 20160823
